FAERS Safety Report 8206193-2 (Version None)
Quarter: 2012Q1

REPORT INFORMATION
  Report Type: 
  Country: None (occurrence: None)
  Receive Date: 20120313
  Receipt Date: 20120306
  Transmission Date: 20120608
  Serious: Yes (Hospitalization, Other)
  Sender: FDA-Public Use
  Company Number: PHHY2011CA00734

PATIENT
  Sex: Female
  Weight: 49.887 kg

DRUGS (5)
  1. ZOLEDRONOC ACID [Suspect]
     Indication: OSTEOPOROSIS
     Dosage: 5 MG
     Route: 042
     Dates: start: 20090918
  2. ZOLEDRONOC ACID [Suspect]
     Dosage: 5 MG
     Route: 042
     Dates: start: 20110131
  3. CALCIUM [Concomitant]
     Dosage: 25 ML, BID
  4. ENSURE [Concomitant]
     Dosage: 3 OR 4 PER DAY
  5. ZOLEDRONOC ACID [Suspect]
     Dosage: UNK UKN, UNK
     Route: 042
     Dates: start: 20120131

REACTIONS (9)
  - THROMBOSIS [None]
  - WEIGHT FLUCTUATION [None]
  - INSOMNIA [None]
  - ABDOMINAL HERNIA [None]
  - SLEEP APNOEA SYNDROME [None]
  - DISCOMFORT [None]
  - ARTHRALGIA [None]
  - BONE PAIN [None]
  - PAIN [None]
